FAERS Safety Report 14746085 (Version 1)
Quarter: 2018Q2

REPORT INFORMATION
  Report Type: Spontaneous
  Country: DK (occurrence: DK)
  Receive Date: 20180411
  Receipt Date: 20180411
  Transmission Date: 20180711
  Serious: Yes (Hospitalization)
  Sender: FDA-Public Use
  Company Number: DK-TEVA-2018-DK-879450

PATIENT
  Age: 66 Year
  Sex: Male

DRUGS (6)
  1. FLUCONAZOLE. [Suspect]
     Active Substance: FLUCONAZOLE
     Indication: ORAL CANDIDIASIS
     Dosage: 400 MILLIGRAM DAILY;
     Route: 065
     Dates: start: 20150130, end: 20150206
  2. CLARITHROMYCIN. [Interacting]
     Active Substance: CLARITHROMYCIN
     Indication: PNEUMONIA
     Route: 065
     Dates: start: 20150129, end: 20150203
  3. AMIODARONE [Interacting]
     Active Substance: AMIODARONE
     Indication: ATRIAL FIBRILLATION
     Route: 065
     Dates: start: 20141024, end: 20150206
  4. BENDAMUSTINE [Concomitant]
     Active Substance: BENDAMUSTINE
     Indication: WALDENSTROM^S MACROGLOBULINAEMIA
     Route: 065
  5. AMOXICILLIN. [Concomitant]
     Active Substance: AMOXICILLIN
     Indication: PNEUMONIA
     Route: 065
     Dates: end: 20150203
  6. CLAVULANIC ACID [Concomitant]
     Active Substance: CLAVULANIC ACID
     Indication: PNEUMONIA
     Route: 065
     Dates: end: 20150203

REACTIONS (3)
  - Alanine aminotransferase increased [Unknown]
  - Electrocardiogram QT prolonged [Recovered/Resolved]
  - Drug interaction [Recovered/Resolved]

NARRATIVE: CASE EVENT DATE: 20151030
